FAERS Safety Report 23937770 (Version 1)
Quarter: 2024Q2

REPORT INFORMATION
  Report Type: Spontaneous
  Country: FR (occurrence: FR)
  Receive Date: 20240604
  Receipt Date: 20240604
  Transmission Date: 20240715
  Serious: Yes (Life-Threatening)
  Sender: FDA-Public Use
  Company Number: None

PATIENT
  Age: 82 Year
  Sex: Male

DRUGS (17)
  1. ETOPOSIDE [Suspect]
     Active Substance: ETOPOSIDE
     Indication: Follicular lymphoma
     Dosage: 100 MILLIGRAM/SQ. METER
     Route: 042
     Dates: start: 20240502, end: 20240502
  2. ETOPOSIDE [Suspect]
     Active Substance: ETOPOSIDE
     Dosage: 100 MILLIGRAM/SQ. METER
     Route: 042
     Dates: start: 20240319, end: 20240319
  3. ETOPOSIDE [Suspect]
     Active Substance: ETOPOSIDE
     Dosage: 100 MILLIGRAM/SQ. METER
     Route: 042
     Dates: start: 20240411, end: 20240411
  4. ETOPOSIDE [Suspect]
     Active Substance: ETOPOSIDE
     Dosage: 100 MILLIGRAM/SQ. METER
     Route: 042
     Dates: start: 20220421, end: 20220421
  5. PREDNISONE [Suspect]
     Active Substance: PREDNISONE
     Indication: Follicular lymphoma
     Dosage: 60 MILLIGRAM, QD
     Route: 042
     Dates: start: 20240411, end: 20240415
  6. PREDNISONE [Suspect]
     Active Substance: PREDNISONE
     Dosage: 60 MILLIGRAM, QD
     Route: 042
     Dates: start: 20220421, end: 20220425
  7. PREDNISONE [Suspect]
     Active Substance: PREDNISONE
     Dosage: 60 MILLIGRAM, QD
     Route: 042
     Dates: start: 20240319, end: 20240323
  8. PREDNISONE [Suspect]
     Active Substance: PREDNISONE
     Dosage: 60 MILLIGRAM, QD
     Route: 042
     Dates: start: 20240502, end: 20240506
  9. RITUXIMAB [Suspect]
     Active Substance: RITUXIMAB
     Indication: Follicular lymphoma
     Dosage: 375 MILLIGRAM/SQ. METER
     Route: 042
     Dates: start: 20240502, end: 20240502
  10. RITUXIMAB [Suspect]
     Active Substance: RITUXIMAB
     Dosage: 375 MILLIGRAM/SQ. METER
     Route: 042
     Dates: start: 20220420, end: 20220420
  11. RITUXIMAB [Suspect]
     Active Substance: RITUXIMAB
     Dosage: 375 MILLIGRAM/SQ. METER
     Route: 042
     Dates: start: 20240319, end: 20240319
  12. RITUXIMAB [Suspect]
     Active Substance: RITUXIMAB
     Dosage: 375 MILLIGRAM/SQ. METER
     Route: 042
     Dates: start: 20240411, end: 20240411
  13. CYCLOPHOSPHAMIDE [Suspect]
     Active Substance: CYCLOPHOSPHAMIDE
     Indication: Follicular lymphoma
     Dosage: 600 MILLIGRAM/SQ. METER
     Route: 042
     Dates: start: 20240502, end: 20240502
  14. CYCLOPHOSPHAMIDE [Suspect]
     Active Substance: CYCLOPHOSPHAMIDE
     Dosage: 600 MILLIGRAM/SQ. METER
     Route: 042
     Dates: start: 20220420, end: 20220420
  15. CYCLOPHOSPHAMIDE [Suspect]
     Active Substance: CYCLOPHOSPHAMIDE
     Dosage: 600 MILLIGRAM/SQ. METER
     Route: 042
     Dates: start: 20240411, end: 20240411
  16. CYCLOPHOSPHAMIDE [Suspect]
     Active Substance: CYCLOPHOSPHAMIDE
     Dosage: 600 MILLIGRAM/SQ. METER
     Route: 042
     Dates: start: 20240319, end: 20240319
  17. METHOTREXATE [Concomitant]
     Active Substance: METHOTREXATE
     Indication: Eczema
     Dosage: 150 MILLIGRAM, QW
     Route: 065

REACTIONS (1)
  - Non-cardiogenic pulmonary oedema [Recovered/Resolved]

NARRATIVE: CASE EVENT DATE: 20240503
